FAERS Safety Report 18531799 (Version 1)
Quarter: 2020Q4

REPORT INFORMATION
  Report Type: Other
  Country: CN (occurrence: CN)
  Receive Date: 20201123
  Receipt Date: 20201123
  Transmission Date: 20210114
  Serious: Yes (Other)
  Sender: FDA-Public Use
  Company Number: CN-ROCHE-2713195

PATIENT

DRUGS (9)
  1. BUSULFAN. [Suspect]
     Active Substance: BUSULFAN
     Indication: PROPHYLAXIS AGAINST TRANSPLANT REJECTION
     Dosage: ON DAYS -7 AND -6
     Route: 065
  2. MYCOPHENOLATE MOFETIL. [Suspect]
     Active Substance: MYCOPHENOLATE MOFETIL
     Indication: PROPHYLAXIS AGAINST TRANSPLANT REJECTION
     Dosage: FROM DAYS -9 TO +30
     Route: 048
  3. ANTITHYMOCYTE IMMUNOGLOBULIN (RABBIT) [Suspect]
     Active Substance: LAPINE T-LYMPHOCYTE IMMUNE GLOBULIN
     Indication: PROPHYLAXIS AGAINST TRANSPLANT REJECTION
     Dosage: 2.5-3.75 MG/KG OR 3 MG/KG ON DAYS -5 TO -2
     Route: 065
  4. CICLOSPORIN A [Suspect]
     Active Substance: CYCLOSPORINE
     Indication: PROPHYLAXIS AGAINST TRANSPLANT REJECTION
     Dosage: FROM DAY -7 UNTIL BOWEL FUNCTION RETURNED TO NORMAL
     Route: 042
  5. METHOTREXATE. [Suspect]
     Active Substance: METHOTREXATE
     Dosage: ON DAY +3, +6 AND +11
     Route: 042
  6. FLUDARABINE [Suspect]
     Active Substance: FLUDARABINE PHOSPHATE
     Indication: PROPHYLAXIS AGAINST TRANSPLANT REJECTION
     Dosage: ON DAYS -5 TO -2
     Route: 065
  7. CYCLOPHOSPHAMIDE. [Suspect]
     Active Substance: CYCLOPHOSPHAMIDE
     Indication: PROPHYLAXIS AGAINST TRANSPLANT REJECTION
     Dosage: FOR 4 CONSECUTIVE DAYS ON DAYS -5 TO -2
     Route: 065
  8. METHOTREXATE. [Suspect]
     Active Substance: METHOTREXATE
     Indication: PROPHYLAXIS AGAINST TRANSPLANT REJECTION
     Dosage: ON DAY +1
     Route: 042
  9. CICLOSPORIN A [Suspect]
     Active Substance: CYCLOSPORINE
     Dosage: A TARGET TROUGH BLOOD CONCENTRATION OF 200-250 NG ML-1 WAS MAINTAINED FOR }/=9 MONTHS AFTER HSCT AND
     Route: 048

REACTIONS (6)
  - Epstein-Barr virus associated lymphoproliferative disorder [Recovered/Resolved]
  - Cytomegalovirus infection reactivation [Unknown]
  - Cytomegalovirus enteritis [Unknown]
  - Cystitis viral [Unknown]
  - Epstein-Barr virus infection reactivation [Unknown]
  - Cystitis haemorrhagic [Recovered/Resolved]
